FAERS Safety Report 8570762-0 (Version None)
Quarter: 2012Q3

REPORT INFORMATION
  Report Type: 
  Country: None (occurrence: None)
  Receive Date: 20120805
  Receipt Date: 20120731
  Transmission Date: 20120928
  Serious: No
  Sender: FDA-Public Use
  Company Number: US-009507513-1208USA000443

PATIENT

DRUGS (4)
  1. LOSARTAN POTASSIUM [Concomitant]
  2. LIVALO [Concomitant]
  3. ZETIA [Suspect]
     Indication: HYPERCHOLESTEROLAEMIA
     Dosage: 10 MG, QD
     Route: 048
     Dates: start: 20120401
  4. ASPIRIN [Concomitant]

REACTIONS (2)
  - ARTHRALGIA [None]
  - BLOOD CHOLESTEROL INCREASED [None]
